FAERS Safety Report 9475807 (Version 1)
Quarter: 2013Q3

REPORT INFORMATION
  Report Type: Spontaneous
  Country: US (occurrence: None)
  Receive Date: 20130821
  Receipt Date: 20130821
  Transmission Date: 20140515
  Serious: No
  Sender: FDA-Public Use
  Company Number: GAM-172-13-US

PATIENT
  Age: 75 Year
  Sex: Female

DRUGS (7)
  1. OCTAGAM (HUMAN NORMAL IMMUNOGLOBULIN (IV) [Suspect]
     Indication: PRIMARY IMMUNODEFICIENCY SYNDROME
     Dosage: 1X.MONTH
     Dates: start: 20130426, end: 20130426
  2. CYCLOBENZAPINE [Concomitant]
  3. HYDROXYCHLOROQUINE [Concomitant]
  4. DOXEPIN [Concomitant]
  5. QUININE SULFATE [Concomitant]
  6. FKUCONAZOLE [Concomitant]
  7. LATANOPROST [Concomitant]

REACTIONS (4)
  - Cellulitis [None]
  - Urinary tract infection [None]
  - Chromaturia [None]
  - Dysuria [None]
